FAERS Safety Report 8429796-9 (Version None)
Quarter: 2012Q2

REPORT INFORMATION
  Report Type: 
  Country: None (occurrence: None)
  Receive Date: 20120323
  Receipt Date: 20110221
  Transmission Date: 20120825
  Serious: Yes (Other)
  Sender: FDA-Public Use
  Company Number: 163-21880-11022768

PATIENT
  Age: 80 Year
  Sex: Male
  Weight: 88.5 kg

DRUGS (16)
  1. BACTRIM DS [Concomitant]
  2. CORGARD [Concomitant]
  3. LASIX [Concomitant]
  4. PROCARDIA XL [Concomitant]
  5. SYNTHROID [Concomitant]
  6. VICODIN [Concomitant]
  7. DEXAMETHASONE [Concomitant]
  8. ASPIRIN [Concomitant]
  9. COMBIVENT [Concomitant]
  10. POTASSIUM CHLORIDE [Concomitant]
  11. LANTUS [Concomitant]
  12. REVLIMID [Suspect]
     Indication: MULTIPLE MYELOMA
     Dosage: 15 MG, 1 IN 1 D, PO ; 10 MG, 1 IN 1 D, PO
     Route: 048
     Dates: start: 20101001, end: 20110111
  13. REVLIMID [Suspect]
     Indication: MULTIPLE MYELOMA
     Dosage: 15 MG, 1 IN 1 D, PO ; 10 MG, 1 IN 1 D, PO
     Route: 048
     Dates: start: 20100524
  14. COZAAR [Concomitant]
  15. INSULIN HUMAN (INSULIN HUMAN) [Concomitant]
  16. ZOCOR [Concomitant]

REACTIONS (1)
  - MULTIPLE MYELOMA [None]
